FAERS Safety Report 12905084 (Version 1)
Quarter: 2016Q4

REPORT INFORMATION
  Report Type: Spontaneous
  Country: JP (occurrence: JP)
  Receive Date: 20161102
  Receipt Date: 20161102
  Transmission Date: 20170207
  Serious: Yes (Death, Other)
  Sender: FDA-Public Use
  Company Number: JP-MYLANLABS-2016M1046668

PATIENT

DRUGS (6)
  1. TRASTUZUMAB [Suspect]
     Active Substance: TRASTUZUMAB
     Indication: ADENOCARCINOMA GASTRIC
     Route: 065
  2. CAPECITABINE. [Suspect]
     Active Substance: CAPECITABINE
     Indication: PARANEOPLASTIC NEUROLOGICAL SYNDROME
     Route: 065
  3. CAPECITABINE. [Suspect]
     Active Substance: CAPECITABINE
     Indication: ADENOCARCINOMA GASTRIC
     Route: 065
  4. CISPLATIN. [Suspect]
     Active Substance: CISPLATIN
     Indication: ADENOCARCINOMA GASTRIC
     Route: 065
  5. TRASTUZUMAB [Suspect]
     Active Substance: TRASTUZUMAB
     Indication: PARANEOPLASTIC NEUROLOGICAL SYNDROME
     Route: 065
  6. CISPLATIN. [Suspect]
     Active Substance: CISPLATIN
     Indication: PARANEOPLASTIC NEUROLOGICAL SYNDROME
     Route: 065

REACTIONS (5)
  - Adenocarcinoma gastric [Fatal]
  - Malignant neoplasm progression [Fatal]
  - Renal impairment [Unknown]
  - Paraneoplastic neurological syndrome [Fatal]
  - Treatment failure [Fatal]
